FAERS Safety Report 21871268 (Version 2)
Quarter: 2023Q1

REPORT INFORMATION
  Report Type: Spontaneous
  Country: US (occurrence: US)
  Receive Date: 20230117
  Receipt Date: 20230309
  Transmission Date: 20230418
  Serious: Yes (Other)
  Sender: FDA-Public Use
  Company Number: US-BAYER-2023P002716

PATIENT
  Age: 18 Year
  Sex: Male

DRUGS (2)
  1. JIVI [Suspect]
     Active Substance: DAMOCTOCOG ALFA PEGOL
     Dosage: UNK (1500 OR 3000U +/-10%)
  2. JIVI [Suspect]
     Active Substance: DAMOCTOCOG ALFA PEGOL
     Dosage: 2 DF, ONCE (TO TREAT THE BLEED)
     Route: 042
     Dates: start: 20221229, end: 20221229

REACTIONS (1)
  - Haemorrhage [None]

NARRATIVE: CASE EVENT DATE: 20221229
